FAERS Safety Report 6081225-9 (Version None)
Quarter: 2009Q1

REPORT INFORMATION
  Report Type: 
  Country: None (occurrence: None)
  Receive Date: 20090213
  Receipt Date: 20090130
  Transmission Date: 20090719
  Serious: Yes (Other)
  Sender: FDA-Public Use
  Company Number: US-1168488

PATIENT
  Age: 84 Year
  Sex: Female

DRUGS (1)
  1. SYSTANE EYE DROPS [Suspect]
     Indication: ASTHENOPIA
     Dosage: OPHTHALMIC
     Route: 047
     Dates: start: 20090101, end: 20090101

REACTIONS (2)
  - EYE PAIN [None]
  - OPTIC ISCHAEMIC NEUROPATHY [None]
